FAERS Safety Report 7226652-9 (Version None)
Quarter: 2011Q1

REPORT INFORMATION
  Report Type: 
  Country: None (occurrence: None)
  Receive Date: 20110105
  Receipt Date: 20101213
  Transmission Date: 20110831
  Serious: Yes (Disabling)
  Sender: FDA-Public Use
  Company Number: TRP_07453_2010

PATIENT
  Sex: Male
  Weight: 86.1834 kg

DRUGS (6)
  1. PEG-INTRON [Suspect]
     Indication: HEPATITIS C
     Dosage: DF
  2. RIBAVIRIN [Suspect]
     Indication: HEPATITIS C
     Dosage: DF ORAL, DF ORAL
     Route: 048
     Dates: start: 20070101, end: 20080101
  3. LEXAPRO [Concomitant]
  4. PROCRIT [Concomitant]
  5. INFERGEN [Suspect]
     Indication: HEPATITIS C
     Dosage: DF, SUBCUTANEOUS
     Route: 058
     Dates: start: 20070101, end: 20080101
  6. PROTONIX [Concomitant]

REACTIONS (30)
  - ROSACEA [None]
  - ABNORMAL BEHAVIOUR [None]
  - LOSS OF EMPLOYMENT [None]
  - TREATMENT FAILURE [None]
  - UNEVALUABLE EVENT [None]
  - TREMOR [None]
  - BALANCE DISORDER [None]
  - INCORRECT DOSE ADMINISTERED [None]
  - GAIT DISTURBANCE [None]
  - BRAIN INJURY [None]
  - FALL [None]
  - MENTAL DISORDER [None]
  - THINKING ABNORMAL [None]
  - HYPOPHAGIA [None]
  - SCREAMING [None]
  - SKIN DISORDER [None]
  - DECREASED APPETITE [None]
  - INITIAL INSOMNIA [None]
  - SKIN EXFOLIATION [None]
  - FATIGUE [None]
  - DIVORCED [None]
  - EXECUTIVE DYSFUNCTION [None]
  - CEREBROVASCULAR ACCIDENT [None]
  - AMNESIA [None]
  - MOOD ALTERED [None]
  - SKIN LESION [None]
  - SLEEP DISORDER [None]
  - ASTHENIA [None]
  - FEELINGS OF WORTHLESSNESS [None]
  - IMPAIRED WORK ABILITY [None]
